FAERS Safety Report 4828583-8 (Version None)
Quarter: 2005Q4

REPORT INFORMATION
  Report Type: 
  Country: None (occurrence: None)
  Receive Date: 20051115
  Receipt Date: 20051103
  Transmission Date: 20060501
  Serious: Yes (Hospitalization)
  Sender: FDA-Public Use
  Company Number: FR-JNJFOC-20051103280

PATIENT
  Age: 68 Year
  Sex: Female

DRUGS (6)
  1. IXPRIM [Suspect]
     Indication: DRUG USE FOR UNKNOWN INDICATION
     Route: 048
  2. LAROXYL [Suspect]
     Indication: DRUG USE FOR UNKNOWN INDICATION
     Route: 048
  3. SERESTA [Suspect]
     Indication: DRUG USE FOR UNKNOWN INDICATION
     Route: 048
  4. NEURONTIN [Suspect]
     Indication: DRUG USE FOR UNKNOWN INDICATION
     Route: 048
  5. CHEMOTHERAPY [Concomitant]
     Indication: BREAST CANCER
     Dosage: 3 COURSES SINCE MAY-2005.
     Route: 065
  6. TERCIAN [Concomitant]
     Indication: RESTLESSNESS
     Route: 065

REACTIONS (5)
  - DRUG WITHDRAWAL SYNDROME [None]
  - ENCEPHALOPATHY [None]
  - MUTISM [None]
  - MYOCLONUS [None]
  - TREMOR [None]
